FAERS Safety Report 10574805 (Version 1)
Quarter: 2014Q4

REPORT INFORMATION
  Report Type: Spontaneous
  Country: AU (occurrence: AU)
  Receive Date: 20141110
  Receipt Date: 20141110
  Transmission Date: 20150529
  Serious: Yes (Hospitalization)
  Sender: FDA-Public Use
  Company Number: AU-SYMPLMED PHARMACEUTICALS-2014SYM00155

PATIENT
  Age: 32 Year
  Sex: Male

DRUGS (1)
  1. ACEON [Suspect]
     Active Substance: PERINDOPRIL ERBUMINE
     Indication: PROPHYLAXIS
     Dosage: UNK
     Dates: start: 20091106, end: 20110111

REACTIONS (1)
  - Jaw fracture [Recovered/Resolved]

NARRATIVE: CASE EVENT DATE: 20091206
